FAERS Safety Report 12125011 (Version 1)
Quarter: 2016Q1

REPORT INFORMATION
  Report Type: Spontaneous
  Country: US (occurrence: None)
  Receive Date: 20160226
  Receipt Date: 20160226
  Transmission Date: 20160526
  Serious: No
  Sender: FDA-Public Use
  Company Number: None

PATIENT
  Age: 57 Year
  Sex: Female

DRUGS (5)
  1. HARVONI [Suspect]
     Active Substance: LEDIPASVIR\SOFOSBUVIR
     Indication: HEPATITIS C
     Dosage: HARVONI 90-400MG DAILY PO
     Route: 048
     Dates: start: 20160129
  2. CLONAZEPAM. [Concomitant]
     Active Substance: CLONAZEPAM
  3. SUMATRIPTAN. [Concomitant]
     Active Substance: SUMATRIPTAN
  4. CITALOPRAM [Concomitant]
     Active Substance: CITALOPRAM HYDROBROMIDE
  5. ONDANSETRON [Concomitant]
     Active Substance: ONDANSETRON

REACTIONS (10)
  - Blood pressure increased [None]
  - Headache [None]
  - Pneumonia [None]
  - Feeling abnormal [None]
  - Night sweats [None]
  - Arthralgia [None]
  - Oral herpes [None]
  - Nausea [None]
  - Constipation [None]
  - Pain in extremity [None]

NARRATIVE: CASE EVENT DATE: 201602
